FAERS Safety Report 6730827-2 (Version None)
Quarter: 2010Q2

REPORT INFORMATION
  Report Type: 
  Country: None (occurrence: None)
  Receive Date: 20100518
  Receipt Date: 20100503
  Transmission Date: 20101027
  Serious: Yes (Death, Hospitalization, Disabling, Other)
  Sender: FDA-Public Use
  Company Number: FR-CELGENEUS-056-21880-09121514

PATIENT
  Sex: Male
  Weight: 74 kg

DRUGS (17)
  1. REVLIMID [Suspect]
     Indication: MULTIPLE MYELOMA
     Route: 048
     Dates: start: 20090804, end: 20090825
  2. REVLIMID [Suspect]
     Dosage: REDUCED DOSE
     Route: 048
     Dates: start: 20090903, end: 20090924
  3. DEXAMETHASONE [Concomitant]
     Indication: MULTIPLE MYELOMA
     Route: 065
     Dates: start: 20090804
  4. DEXAMETHASONE [Concomitant]
  5. EPO [Concomitant]
     Indication: PROPHYLAXIS
     Route: 065
  6. LOVENOX [Concomitant]
     Indication: PROPHYLAXIS
     Route: 065
  7. ZYLORIC [Interacting]
     Indication: PROPHYLAXIS
     Route: 065
  8. AUGMENTIN '125' [Concomitant]
     Route: 065
  9. TAVANIC [Interacting]
     Route: 065
  10. CARDENSIEL [Concomitant]
     Indication: VENTRICULAR DYSFUNCTION
     Route: 065
     Dates: start: 20091003
  11. HYDROCORTISONE [Concomitant]
     Indication: DRUG USE FOR UNKNOWN INDICATION
     Dosage: 2 IN MORNING AND 1 AT NOON
     Route: 065
  12. NEXIUM [Concomitant]
     Indication: DRUG USE FOR UNKNOWN INDICATION
     Route: 065
  13. ZALDIAR [Concomitant]
     Indication: DRUG USE FOR UNKNOWN INDICATION
     Route: 065
  14. ZALDIAR [Concomitant]
  15. LEXOMYL [Concomitant]
     Indication: DRUG USE FOR UNKNOWN INDICATION
     Route: 065
  16. GAVISCON [Concomitant]
     Indication: DRUG USE FOR UNKNOWN INDICATION
     Route: 065
  17. BETAGAN [Concomitant]
     Indication: DRUG USE FOR UNKNOWN INDICATION
     Dosage: 0.5-1 DROPS

REACTIONS (39)
  - ABDOMINAL WALL HAEMATOMA [None]
  - ABNORMAL BEHAVIOUR [None]
  - ACTIVITIES OF DAILY LIVING IMPAIRED [None]
  - AFFECTIVE DISORDER [None]
  - AGGRESSION [None]
  - ALTERED STATE OF CONSCIOUSNESS [None]
  - ANAEMIA HAEMOLYTIC AUTOIMMUNE [None]
  - APHASIA [None]
  - ARTHRALGIA [None]
  - ASTHENIA [None]
  - BACK PAIN [None]
  - BLOOD BLISTER [None]
  - BLOOD DISORDER [None]
  - BLOOD THYROID STIMULATING HORMONE INCREASED [None]
  - CEREBELLAR ATAXIA [None]
  - CEREBRAL ISCHAEMIA [None]
  - COAGULOPATHY [None]
  - COGNITIVE DISORDER [None]
  - CONFUSIONAL STATE [None]
  - DISORIENTATION [None]
  - EXTRAPYRAMIDAL DISORDER [None]
  - GENERAL PHYSICAL HEALTH DETERIORATION [None]
  - HAEMATOTOXICITY [None]
  - HYPOAESTHESIA ORAL [None]
  - HYPOTENSION [None]
  - IATROGENIC INJURY [None]
  - IMMOBILE [None]
  - INCOHERENT [None]
  - MALIGNANT NEOPLASM PROGRESSION [None]
  - MENINGITIS [None]
  - MULTIPLE MYELOMA [None]
  - OEDEMA [None]
  - PANCYTOPENIA [None]
  - PLATELET TOXICITY [None]
  - PYREXIA [None]
  - SOMNOLENCE [None]
  - TRI-IODOTHYRONINE DECREASED [None]
  - VENTRICULAR EXTRASYSTOLES [None]
  - VENTRICULAR TACHYCARDIA [None]
